FAERS Safety Report 21561115 (Version 2)
Quarter: 2022Q4

REPORT INFORMATION
  Report Type: Report from Study
  Country: CO (occurrence: CO)
  Receive Date: 20221107
  Receipt Date: 20221109
  Transmission Date: 20230112
  Serious: Yes (Hospitalization)
  Sender: FDA-Public Use
  Company Number: CO-ABBVIE-4188551

PATIENT
  Age: 54 Year
  Sex: Male
  Weight: 92 kg

DRUGS (2)
  1. HUMIRA [Suspect]
     Active Substance: ADALIMUMAB
     Indication: Hidradenitis
     Route: 058
     Dates: start: 20190627
  2. TAMSULOSIN [Concomitant]
     Active Substance: TAMSULOSIN
     Indication: Product used for unknown indication
     Dosage: 4 MILLIGRAM
     Route: 048
     Dates: start: 202210

REACTIONS (10)
  - Malaise [Recovering/Resolving]
  - Contusion [Recovering/Resolving]
  - Urinary tract infection [Recovering/Resolving]
  - Dizziness [Recovering/Resolving]
  - Chills [Recovering/Resolving]
  - Prostatomegaly [Recovering/Resolving]
  - Decreased appetite [Recovering/Resolving]
  - Pyrexia [Recovering/Resolving]
  - Laboratory test abnormal [Recovering/Resolving]
  - Bedridden [Recovering/Resolving]

NARRATIVE: CASE EVENT DATE: 20221001
